FAERS Safety Report 10952704 (Version 1)
Quarter: 2015Q1

REPORT INFORMATION
  Report Type: Spontaneous
  Country: US (occurrence: None)
  Receive Date: 20150324
  Receipt Date: 20150324
  Transmission Date: 20150721
  Serious: Yes (Disabling)
  Sender: FDA-Public Use
  Company Number: None

PATIENT
  Sex: Male

DRUGS (1)
  1. CIPRO [Suspect]
     Active Substance: CIPROFLOXACIN HYDROCHLORIDE
     Indication: PROSTATITIS
     Dates: start: 20130301, end: 20130322

REACTIONS (7)
  - Liver injury [None]
  - Tendon injury [None]
  - Tendonitis [None]
  - Ageusia [None]
  - Optic neuritis [None]
  - Dry eye [None]
  - Dry mouth [None]

NARRATIVE: CASE EVENT DATE: 20130301
